FAERS Safety Report 9605747 (Version 2)
Quarter: 2013Q4

REPORT INFORMATION
  Report Type: Report from Study
  Country: BR (occurrence: BR)
  Receive Date: 20131008
  Receipt Date: 20131008
  Transmission Date: 20140711
  Serious: Yes (Death)
  Sender: FDA-Public Use
  Company Number: BR-CUBIST PHARMACEUTICALS, INC.-2013CBST000660

PATIENT
  Sex: 0

DRUGS (1)
  1. CUBICIN [Suspect]
     Indication: PRODUCT USED FOR UNKNOWN INDICATION
     Dosage: 8 MG/KG, UNK
     Route: 065
     Dates: start: 2011, end: 2011

REACTIONS (1)
  - Bladder cancer [Fatal]
